FAERS Safety Report 22072093 (Version 2)
Quarter: 2023Q1

REPORT INFORMATION
  Report Type: Report from Study
  Country: US (occurrence: US)
  Receive Date: 20230308
  Receipt Date: 20230323
  Transmission Date: 20230418
  Serious: No
  Sender: FDA-Public Use
  Company Number: US-TAKEDA-2022TUS067925

PATIENT
  Sex: Female

DRUGS (4)
  1. MARIBAVIR [Interacting]
     Active Substance: MARIBAVIR
     Indication: Cytomegalovirus infection
     Dosage: 400 MILLIGRAM, BID
     Route: 048
     Dates: start: 20220920
  2. MARIBAVIR [Interacting]
     Active Substance: MARIBAVIR
     Dosage: 400 MILLIGRAM, BID
     Route: 048
     Dates: start: 20220920
  3. ENVARSUS XR [Suspect]
     Active Substance: TACROLIMUS
     Indication: Product used for unknown indication
     Dosage: UNK
     Route: 065
  4. PREDNISONE [Suspect]
     Active Substance: PREDNISONE
     Indication: Product used for unknown indication
     Dosage: UNK
     Route: 065

REACTIONS (16)
  - Drug effect less than expected [Unknown]
  - Laboratory test abnormal [Unknown]
  - Rebound effect [Unknown]
  - Hunger [Unknown]
  - Weight increased [Unknown]
  - Constipation [Unknown]
  - Dyspnoea [Recovering/Resolving]
  - Palpitations [Recovering/Resolving]
  - Tremor [Unknown]
  - Memory impairment [Unknown]
  - Full blood count abnormal [Unknown]
  - Anaemia [Unknown]
  - Fatigue [Unknown]
  - Taste disorder [Unknown]
  - Dysgeusia [Unknown]
  - Incorrect dose administered [Unknown]
